FAERS Safety Report 8427568-2 (Version None)
Quarter: 2012Q2

REPORT INFORMATION
  Report Type: 
  Country: None (occurrence: None)
  Receive Date: 20120611
  Receipt Date: 20120604
  Transmission Date: 20120825
  Serious: Yes (Hospitalization)
  Sender: FDA-Public Use
  Company Number: HR-GENZYME-CAMP-1002234

PATIENT
  Sex: Male
  Weight: 99 kg

DRUGS (2)
  1. ALEMTUZUMAB [Suspect]
     Indication: MULTIPLE SCLEROSIS
     Dosage: UNK UNK, UNK
     Dates: start: 20040309, end: 20040311
  2. ALEMTUZUMAB [Suspect]
     Dosage: UNK UNK, UNK
     Dates: start: 20030227, end: 20030303

REACTIONS (1)
  - THROMBOPHLEBITIS [None]
